FAERS Safety Report 8849547 (Version 1)
Quarter: 2012Q4

REPORT INFORMATION
  Report Type: 
  Country: FR (occurrence: FR)
  Receive Date: 20121019
  Receipt Date: 20121019
  Transmission Date: 20130627
  Serious: Yes (Hospitalization)
  Sender: FDA-Public Use
  Company Number: FR-PFIZER INC-2012257257

PATIENT
  Age: 86 Year
  Sex: Female

DRUGS (14)
  1. ARTOTEC [Suspect]
     Dosage: 0.2mg/75mg, 2x/day
     Route: 048
     Dates: end: 20120730
  2. DIFFU K [Suspect]
     Dosage: 1 DF, 1x/day
     Route: 048
     Dates: end: 20120730
  3. CHOLECALCIFEROL [Suspect]
     Indication: OSTEOPOROSIS
     Dosage: UNK
     Route: 048
     Dates: end: 20120730
  4. CACIT D3 [Suspect]
     Indication: OSTEOPOROSIS
     Dosage: 1000 mg, 1x/day
     Route: 048
     Dates: end: 20120730
  5. VESICARE [Suspect]
     Indication: URINARY RETENTION
     Dosage: 5 mg, daily
     Route: 048
     Dates: end: 20120730
  6. NEUPRO [Suspect]
     Indication: PARKINSON^S DISEASE
     Dosage: 2 mg, 2x/day
     Route: 048
     Dates: end: 20120730
  7. ACTONEL [Concomitant]
  8. GAVISCON [Concomitant]
  9. MODOPAR [Concomitant]
  10. ATHYMIL [Concomitant]
     Dosage: UNK
  11. IXPRIM [Concomitant]
  12. IMOVANE [Concomitant]
     Dosage: 7.5 mg, UNK
  13. FORLAX [Concomitant]
  14. INEXIUM [Concomitant]
     Dosage: 20 mg, UNK

REACTIONS (5)
  - Renal failure acute [Recovered/Resolved]
  - Hyperkalaemia [Recovered/Resolved]
  - Hypercalcaemia [Recovered/Resolved]
  - Respiratory tract infection [None]
  - Pulmonary oedema [None]
